FAERS Safety Report 21619584 (Version 1)
Quarter: 2022Q4

REPORT INFORMATION
  Report Type: Spontaneous
  Country: US (occurrence: US)
  Receive Date: 20221121
  Receipt Date: 20221121
  Transmission Date: 20230113
  Serious: Yes (Hospitalization)
  Sender: FDA-Public Use
  Company Number: US-GILEAD-2022-0604721

PATIENT
  Age: 50 Year
  Sex: Male

DRUGS (5)
  1. EPCLUSA [Suspect]
     Active Substance: SOFOSBUVIR\VELPATASVIR
     Indication: Hepatitis C
     Dosage: 1 DOSAGE FORM
     Route: 065
     Dates: start: 20221108
  2. HUMALOG [Concomitant]
     Active Substance: INSULIN LISPRO
  3. BASAGLAR [Concomitant]
     Active Substance: INSULIN GLARGINE
  4. METFORMIN [Concomitant]
     Active Substance: METFORMIN HYDROCHLORIDE
  5. METHADONE [Concomitant]
     Active Substance: METHADONE HYDROCHLORIDE

REACTIONS (3)
  - Hypoglycaemia [Recovering/Resolving]
  - Confusional state [Recovering/Resolving]
  - Behaviour disorder [Recovering/Resolving]

NARRATIVE: CASE EVENT DATE: 20221109
